FAERS Safety Report 6244877-6 (Version None)
Quarter: 2009Q2

REPORT INFORMATION
  Report Type: 
  Country: None (occurrence: None)
  Receive Date: 20090625
  Receipt Date: 20090617
  Transmission Date: 20091009
  Serious: Yes (Hospitalization)
  Sender: FDA-Public Use
  Company Number: B0576070A

PATIENT
  Sex: Female

DRUGS (7)
  1. PAXIL [Suspect]
     Indication: DEPRESSION
     Dosage: 10MG TWICE PER DAY
     Route: 048
     Dates: start: 20090213, end: 20090302
  2. AMOXAN [Concomitant]
     Indication: ANXIETY
     Dosage: 25MG PER DAY
     Route: 048
     Dates: start: 20081230, end: 20090302
  3. DEPAS [Concomitant]
     Indication: DEPRESSION
     Dosage: .5MG PER DAY
     Route: 048
     Dates: start: 20081230, end: 20090302
  4. HALCION [Concomitant]
     Indication: INSOMNIA
     Dosage: .25MG PER DAY
     Route: 048
     Dates: start: 20081218, end: 20090302
  5. OMEPRAL [Concomitant]
     Dosage: 20MG PER DAY
     Route: 048
     Dates: start: 20081212, end: 20090302
  6. THYRADIN [Concomitant]
     Dosage: 50MCG PER DAY
     Route: 048
     Dates: start: 20081212, end: 20090302
  7. GASMOTIN [Concomitant]
     Indication: GASTRITIS
     Dosage: 45MG PER DAY
     Route: 048
     Dates: start: 20081218, end: 20090302

REACTIONS (12)
  - ANOREXIA [None]
  - BRADYKINESIA [None]
  - CHEST PAIN [None]
  - COLD SWEAT [None]
  - DYSURIA [None]
  - FALL [None]
  - HYPERHIDROSIS [None]
  - HYPONATRAEMIA [None]
  - INAPPROPRIATE ANTIDIURETIC HORMONE SECRETION [None]
  - OEDEMA [None]
  - PALPITATIONS [None]
  - VOMITING [None]
